FAERS Safety Report 12895681 (Version 2)
Quarter: 2016Q4

REPORT INFORMATION
  Report Type: Spontaneous
  Country: US (occurrence: US)
  Receive Date: 20161031
  Receipt Date: 20161123
  Transmission Date: 20170207
  Serious: Yes (Other)
  Sender: FDA-Public Use
  Company Number: US-009507513-1610USA011180

PATIENT
  Age: 17 Year
  Sex: Female

DRUGS (1)
  1. NEXPLANON [Suspect]
     Active Substance: ETONOGESTREL
     Indication: CONTRACEPTION
     Dosage: 1 IMPLANT (68 MG), INSERTED ONE TIME; FREQUENCY REPORTED AS 1X (ONCE)
     Route: 058
     Dates: start: 20151112, end: 20151202

REACTIONS (3)
  - Headache [Unknown]
  - Unintended pregnancy [Unknown]
  - Pregnancy with implant contraceptive [Unknown]

NARRATIVE: CASE EVENT DATE: 20151202
